FAERS Safety Report 23415630 (Version 4)
Quarter: 2024Q1

REPORT INFORMATION
  Report Type: Report from Study
  Country: KR (occurrence: KR)
  Receive Date: 20240118
  Receipt Date: 20240326
  Transmission Date: 20240410
  Serious: Yes (Death, Hospitalization, Other)
  Sender: FDA-Public Use
  Company Number: KR-ABBVIE-5589034

PATIENT
  Age: 74 Year
  Sex: Male
  Weight: 77 kg

DRUGS (15)
  1. VENCLEXTA [Suspect]
     Active Substance: VENETOCLAX
     Indication: Acute myeloid leukaemia
     Route: 048
     Dates: start: 20230714, end: 20230714
  2. VENCLEXTA [Suspect]
     Active Substance: VENETOCLAX
     Indication: Acute myeloid leukaemia
     Route: 048
     Dates: start: 20230713, end: 20230713
  3. VENCLEXTA [Suspect]
     Active Substance: VENETOCLAX
     Indication: Acute myeloid leukaemia
     Route: 048
     Dates: start: 20230918
  4. VENCLEXTA [Suspect]
     Active Substance: VENETOCLAX
     Indication: Acute myeloid leukaemia
     Route: 048
     Dates: start: 20230715, end: 20230917
  5. VENCLEXTA [Suspect]
     Active Substance: VENETOCLAX
     Indication: Acute myeloid leukaemia
     Route: 048
     Dates: end: 20240312
  6. BANAN [Concomitant]
     Active Substance: CEFPODOXIME PROXETIL
     Indication: Infection prophylaxis
     Route: 048
     Dates: start: 20231115, end: 20231122
  7. LEVOFLOXACIN [Concomitant]
     Active Substance: LEVOFLOXACIN
     Indication: Infection prophylaxis
     Dosage: FORM STRENGTH UNITS:500 MILLIGRAM
     Dates: start: 20230721, end: 20230728
  8. DECILID [Concomitant]
     Indication: Acute myeloid leukaemia
     Dosage: FORM STRENGTH UNITS: 40 MILLIGRAM
     Route: 042
     Dates: start: 20230713, end: 20240112
  9. NOXAFIL [Concomitant]
     Active Substance: POSACONAZOLE
     Indication: Infection prophylaxis
     Dosage: GASTRO RESISTANT TAB 100MG?FORM STRENGTH UNITS: 100 MILLIGRAM
     Route: 048
     Dates: start: 20230720, end: 20230917
  10. PROBIOTICS NOS [Concomitant]
     Active Substance: PROBIOTICS NOS
     Indication: Prophylaxis
     Route: 048
     Dates: start: 20231115, end: 20231122
  11. CEFTRIAXONE SODIUM [Concomitant]
     Active Substance: CEFTRIAXONE SODIUM
     Indication: Infection prophylaxis
     Dosage: FORM STRENGTH: 2 G
     Route: 042
     Dates: start: 20230710, end: 20230720
  12. FEBUXOSTAT [Concomitant]
     Active Substance: FEBUXOSTAT
     Indication: Prophylaxis
     Dosage: TAB 40MG?FORM STRENGTH UNITS: 40 MILLIGRAM
     Dates: start: 20230711, end: 20230727
  13. PREDNISOLONE [Concomitant]
     Active Substance: PREDNISOLONE
     Indication: Pruritus
     Route: 048
     Dates: start: 20231016, end: 20231031
  14. MEGACE F [Concomitant]
     Indication: Decreased appetite
     Dosage: SUSP
     Route: 048
     Dates: start: 20230710, end: 20230727
  15. PENIRAMIN [Concomitant]
     Indication: Pruritus
     Route: 048
     Dates: start: 20231016, end: 20231031

REACTIONS (4)
  - Pneumonia [Fatal]
  - Neutropenia [Recovered/Resolved]
  - Pneumonia [Recovered/Resolved]
  - Disease progression [Not Recovered/Not Resolved]

NARRATIVE: CASE EVENT DATE: 20231108
